FAERS Safety Report 12252893 (Version 1)
Quarter: 2016Q2

REPORT INFORMATION
  Report Type: Spontaneous
  Country: HU (occurrence: HU)
  Receive Date: 20160411
  Receipt Date: 20160411
  Transmission Date: 20160815
  Serious: Yes (Death)
  Sender: FDA-Public Use
  Company Number: HU-TOLMAR, INC.-2016HU003245

PATIENT
  Sex: Male

DRUGS (2)
  1. ELIGARD [Suspect]
     Active Substance: LEUPROLIDE ACETATE
     Indication: PROSTATE CANCER
     Route: 065
  2. ANDROCUR [Concomitant]
     Active Substance: CYPROTERONE ACETATE
     Dosage: 100 MG, UNK
     Route: 065
     Dates: start: 201506, end: 201509

REACTIONS (2)
  - Prostatic specific antigen increased [Unknown]
  - Gastric haemorrhage [Fatal]
